FAERS Safety Report 10050053 (Version 2)
Quarter: 2014Q2

REPORT INFORMATION
  Report Type: Spontaneous
  Country: ES (occurrence: ES)
  Receive Date: 20140401
  Receipt Date: 20140401
  Transmission Date: 20141212
  Serious: Yes (Other)
  Sender: FDA-Public Use
  Company Number: ES-ABBVIE-13X-144-1089771-00

PATIENT
  Age: 65 Year
  Sex: Female

DRUGS (4)
  1. KREON [Suspect]
     Indication: PANCREATIC INSUFFICIENCY
     Route: 048
     Dates: start: 2013, end: 2013
  2. LEXATIN [Concomitant]
     Indication: DEPRESSION
     Route: 048
  3. OMEPRAZOLE [Concomitant]
     Indication: PRODUCT USED FOR UNKNOWN INDICATION
     Route: 048
  4. PARACETAMOL [Concomitant]
     Indication: PRODUCT USED FOR UNKNOWN INDICATION
     Route: 048

REACTIONS (7)
  - Palatal oedema [Recovered/Resolved]
  - Lip oedema [Recovered/Resolved]
  - Generalised erythema [Recovered/Resolved]
  - Burning sensation [Recovered/Resolved]
  - Throat irritation [Recovered/Resolved]
  - Erythema [Recovered/Resolved]
  - Pruritus [Recovered/Resolved]
